FAERS Safety Report 9300821 (Version 1)
Quarter: 2013Q2

REPORT INFORMATION
  Report Type: Spontaneous
  Country: GR (occurrence: GR)
  Receive Date: 20130521
  Receipt Date: 20130521
  Transmission Date: 20140414
  Serious: Yes (Hospitalization)
  Sender: FDA-Public Use
  Company Number: PHHY2013GR049403

PATIENT
  Age: 78 Year
  Sex: Female

DRUGS (1)
  1. METRONIDAZOLE [Suspect]
     Indication: BACTEROIDES INFECTION

REACTIONS (1)
  - Squamous cell carcinoma of the vulva [Recovered/Resolved]
